FAERS Safety Report 16662248 (Version 2)
Quarter: 2020Q1

REPORT INFORMATION
  Report Type: Report from Study
  Country: US (occurrence: US)
  Receive Date: 20190802
  Receipt Date: 20200129
  Transmission Date: 20200409
  Serious: No
  Sender: FDA-Public Use
  Company Number: US-EXELIXIS-CABO-18017876

PATIENT
  Sex: Male
  Weight: 127.89 kg

DRUGS (14)
  1. AMLODIPINE BESYLATE. [Concomitant]
     Active Substance: AMLODIPINE BESYLATE
  2. OMEPRAZOLE. [Concomitant]
     Active Substance: OMEPRAZOLE
  3. SPIRIVA [Concomitant]
     Active Substance: TIOTROPIUM BROMIDE MONOHYDRATE
  4. CABOMETYX [Suspect]
     Active Substance: CABOZANTINIB S-MALATE
     Indication: RENAL CELL CARCINOMA
     Dosage: 60 MG, QD
     Route: 048
     Dates: start: 20181005
  5. TRAMADOL HCL [Concomitant]
     Active Substance: TRAMADOL HYDROCHLORIDE
  6. METOPROLOL TARTRATE. [Concomitant]
     Active Substance: METOPROLOL TARTRATE
  7. TOPIRAMATE. [Concomitant]
     Active Substance: TOPIRAMATE
  8. MELOXICAM. [Concomitant]
     Active Substance: MELOXICAM
  9. FUROSEMIDE. [Concomitant]
     Active Substance: FUROSEMIDE
  10. LISINOPRIL. [Concomitant]
     Active Substance: LISINOPRIL
  11. CARVEDILOL. [Concomitant]
     Active Substance: CARVEDILOL
  12. CABOMETYX [Suspect]
     Active Substance: CABOZANTINIB S-MALATE
     Dosage: 40 MG, QD
     Route: 048
  13. LIDOCAINE HCL [Concomitant]
     Active Substance: LIDOCAINE HYDROCHLORIDE
  14. CEPHALEXIN. [Concomitant]
     Active Substance: CEPHALEXIN

REACTIONS (4)
  - Oral discomfort [Unknown]
  - Feeling hot [Unknown]
  - Sinusitis [Unknown]
  - Epistaxis [Unknown]

NARRATIVE: CASE EVENT DATE: 2018
